FAERS Safety Report 11381199 (Version 1)
Quarter: 2015Q3

REPORT INFORMATION
  Report Type: Report from Study
  Country: US (occurrence: US)
  Receive Date: 20150814
  Receipt Date: 20150814
  Transmission Date: 20151125
  Serious: Yes (Other)
  Sender: FDA-Public Use
  Company Number: US-AMGEN-USASP2015082205

PATIENT
  Age: 47 Year
  Sex: Male

DRUGS (2)
  1. ENBREL [Suspect]
     Active Substance: ETANERCEPT
     Indication: PSORIASIS
  2. ENBREL [Suspect]
     Active Substance: ETANERCEPT
     Indication: RHEUMATOID ARTHRITIS
     Dosage: UNK UNK, QWK
     Route: 065
     Dates: start: 2003, end: 2015

REACTIONS (10)
  - Spinal disorder [Unknown]
  - Pneumonia [Unknown]
  - Staphylococcal infection [Unknown]
  - Depressed mood [Unknown]
  - Ill-defined disorder [Unknown]
  - Furuncle [Unknown]
  - Surgery [Unknown]
  - Clostridium difficile infection [Unknown]
  - Gastric disorder [Unknown]
  - Nerve compression [Unknown]

NARRATIVE: CASE EVENT DATE: 200712
